FAERS Safety Report 8707506 (Version 3)
Quarter: 2012Q4

REPORT INFORMATION
  Report Type: 
  Country: US (occurrence: US)
  Receive Date: 20120804
  Receipt Date: 20120924
  Transmission Date: 20130627
  Serious: No
  Sender: FDA-Public Use
  Company Number: US-009507513-1207USA010850

PATIENT
  Sex: Female

DRUGS (6)
  1. REBETOL [Suspect]
     Indication: HEPATITIS C
     Dosage: UNK
     Dates: start: 20061101
  2. REBETOL [Suspect]
     Dosage: UNK
     Dates: start: 20120716
  3. REBETOL [Suspect]
     Dosage: UNK
     Dates: start: 20071101
  4. VICTRELIS [Suspect]
     Indication: HEPATITIS C
     Dosage: UNK
     Dates: start: 20120813
  5. PEGASYS [Concomitant]
     Indication: HEPATITIS C
     Dosage: UNK
     Dates: start: 20061101
  6. PEGASYS [Concomitant]
     Dosage: UNK
     Dates: start: 20120716

REACTIONS (6)
  - Influenza like illness [Unknown]
  - Nausea [Unknown]
  - Fatigue [Unknown]
  - No therapeutic response [Unknown]
  - Dysgeusia [Unknown]
  - Drug ineffective [Unknown]
